FAERS Safety Report 6266804-8 (Version None)
Quarter: 2009Q3

REPORT INFORMATION
  Report Type: 
  Country: None (occurrence: None)
  Receive Date: 20090709
  Receipt Date: 20090709
  Transmission Date: 20100115
  Serious: No
  Sender: FDA-Public Use
  Company Number: None

PATIENT
  Sex: Male
  Weight: 177 kg

DRUGS (3)
  1. SIMVASTATIN [Suspect]
     Indication: BLOOD CHOLESTEROL INCREASED
     Dosage: 1 PILL/DAY SEEM SLOW 20 MG
     Dates: start: 20061122, end: 20090626
  2. SIMVASTATIN [Suspect]
  3. JANUVIA [Concomitant]

REACTIONS (3)
  - ALOPECIA [None]
  - CONSTIPATION [None]
  - LARGE INTESTINE PERFORATION [None]
